FAERS Safety Report 14650697 (Version 2)
Quarter: 2018Q1

REPORT INFORMATION
  Report Type: Spontaneous
  Country: IT (occurrence: IT)
  Receive Date: 20180316
  Receipt Date: 20180322
  Transmission Date: 20180509
  Serious: Yes (Hospitalization)
  Sender: FDA-Public Use
  Company Number: IT-TEVA-2018-IT-868840

PATIENT
  Age: 44 Year
  Sex: Male

DRUGS (2)
  1. SODIUM-VALPROATE [Suspect]
     Active Substance: VALPROATE SODIUM
     Indication: GENERALISED TONIC-CLONIC SEIZURE
     Dosage: 1000 MILLIGRAM DAILY; 1000MG PER DAY IN TWO DIVIDED DOSES
     Route: 065
  2. CHLORAMBUCIL [Concomitant]
     Active Substance: CHLORAMBUCIL
     Dosage: 3 MILLIGRAM DAILY; 3MG PER DAY
     Route: 065

REACTIONS (1)
  - Aplasia pure red cell [Recovered/Resolved]
